FAERS Safety Report 7379028-8 (Version None)
Quarter: 2011Q1

REPORT INFORMATION
  Report Type: 
  Country: None (occurrence: None)
  Receive Date: 20110328
  Receipt Date: 20110324
  Transmission Date: 20110831
  Serious: Yes (Hospitalization, Other)
  Sender: FDA-Public Use
  Company Number: GB-ABBOTT-10P-167-0682937-00

PATIENT
  Sex: Female

DRUGS (1)
  1. HUMIRA [Suspect]
     Indication: PSORIASIS
     Dates: end: 20101001

REACTIONS (5)
  - URINARY TRACT INFECTION [None]
  - CELLULITIS [None]
  - CLOSTRIDIAL INFECTION [None]
  - CARDIAC FAILURE [None]
  - LYMPHOEDEMA [None]
